FAERS Safety Report 6933104-X (Version None)
Quarter: 2010Q3

REPORT INFORMATION
  Report Type: 
  Country: None (occurrence: None)
  Receive Date: 20100819
  Receipt Date: 20100817
  Transmission Date: 20110219
  Serious: Yes (Hospitalization)
  Sender: FDA-Public Use
  Company Number: US-BRISTOL-MYERS SQUIBB COMPANY-15235427

PATIENT
  Age: 54 Year
  Sex: Male

DRUGS (7)
  1. ONGLYZA [Suspect]
     Route: 048
     Dates: start: 20100426, end: 20100806
  2. GLIPIZIDE [Concomitant]
  3. GLUMETZA [Concomitant]
  4. PRAVACHOL [Concomitant]
  5. AVAPRO [Concomitant]
  6. ASPIRIN [Concomitant]
  7. LEVOXYL [Concomitant]

REACTIONS (1)
  - PANCREATITIS ACUTE [None]
